FAERS Safety Report 9619904 (Version 2)
Quarter: 2013Q4

REPORT INFORMATION
  Report Type: Spontaneous
  Country: JP (occurrence: JP)
  Receive Date: 20131014
  Receipt Date: 20131014
  Transmission Date: 20140711
  Serious: Yes (Hospitalization, Other)
  Sender: FDA-Public Use
  Company Number: JP-MYLANLABS-2013S1022401

PATIENT
  Age: 10 Year
  Sex: Female
  Weight: 17.7 kg

DRUGS (4)
  1. LEVETIRACETAM [Suspect]
     Indication: EPILEPSY
     Dosage: 250 MG/DAY
     Route: 065
  2. TOPIRAMATE [Suspect]
     Dosage: UP TO 60 MG/DAY
     Route: 065
  3. CLONAZEPAM [Concomitant]
     Route: 065
  4. LAMOTRIGINE [Concomitant]
     Route: 065

REACTIONS (4)
  - Psychotic disorder [Recovered/Resolved]
  - Akinesia [Unknown]
  - Hyporesponsive to stimuli [Unknown]
  - Nystagmus [Recovered/Resolved]
